FAERS Safety Report 6422332-8 (Version None)
Quarter: 2009Q4

REPORT INFORMATION
  Report Type: 
  Country: None (occurrence: None)
  Receive Date: 20091030
  Receipt Date: 20091021
  Transmission Date: 20100525
  Serious: Yes (Other)
  Sender: FDA-Public Use
  Company Number: US-ABBOTT-09P-163-0604146-00

PATIENT
  Sex: Male
  Weight: 87.168 kg

DRUGS (4)
  1. HUMIRA [Suspect]
     Indication: CROHN'S DISEASE
     Dates: start: 20090501, end: 20090501
  2. HUMIRA [Suspect]
  3. HUMIRA [Suspect]
  4. PROTONIX [Concomitant]
     Indication: BARRETT'S OESOPHAGUS

REACTIONS (6)
  - DIARRHOEA [None]
  - GRIP STRENGTH DECREASED [None]
  - HYPOAESTHESIA [None]
  - MASTICATION DISORDER [None]
  - ORAL PAIN [None]
  - SENSITIVITY OF TEETH [None]
